FAERS Safety Report 7118269-1 (Version None)
Quarter: 2010Q4

REPORT INFORMATION
  Report Type: 
  Country: None (occurrence: None)
  Receive Date: 20101123
  Receipt Date: 20101111
  Transmission Date: 20110411
  Serious: Yes (Hospitalization)
  Sender: FDA-Public Use
  Company Number: TW-JNJFOC-20101104080

PATIENT
  Age: 90 Year
  Sex: Female

DRUGS (1)
  1. CRAVIT [Suspect]
     Indication: PNEUMONIA
     Route: 041
     Dates: start: 20100712, end: 20100718

REACTIONS (3)
  - INAPPROPRIATE SCHEDULE OF DRUG ADMINISTRATION [None]
  - INFUSION SITE RASH [None]
  - PRURITUS [None]
